FAERS Safety Report 6704136-1 (Version None)
Quarter: 2010Q2

REPORT INFORMATION
  Report Type: 
  Country: None (occurrence: None)
  Receive Date: 20100423
  Receipt Date: 20100218
  Transmission Date: 20101027
  Serious: No
  Sender: FDA-Public Use
  Company Number: ALL1-2010-00942

PATIENT
  Sex: Female
  Weight: 63.5 kg

DRUGS (4)
  1. VYVANSE [Suspect]
     Indication: ATTENTION DEFICIT/HYPERACTIVITY DISORDER
     Dosage: 70 MG, 1X/DAY:QD, ORAL,  HALF OF A 70 MG CAPSULE, 1X/DAY:QD, ORAL
     Route: 048
     Dates: start: 20090101, end: 20090101
  2. VYVANSE [Suspect]
     Indication: ATTENTION DEFICIT/HYPERACTIVITY DISORDER
     Dosage: 70 MG, 1X/DAY:QD, ORAL,  HALF OF A 70 MG CAPSULE, 1X/DAY:QD, ORAL
     Route: 048
     Dates: start: 20090101, end: 20090216
  3. VYVANSE [Suspect]
     Indication: ATTENTION DEFICIT/HYPERACTIVITY DISORDER
     Dosage: 70 MG, 1X/DAY:QD, ORAL,  HALF OF A 70 MG CAPSULE, 1X/DAY:QD, ORAL
     Route: 048
     Dates: start: 20100217
  4. NEXIUM [Concomitant]

REACTIONS (5)
  - ASTHENIA [None]
  - DISTURBANCE IN ATTENTION [None]
  - DYSGEUSIA [None]
  - INCORRECT DOSE ADMINISTERED [None]
  - SOCIAL AVOIDANT BEHAVIOUR [None]
